FAERS Safety Report 5227989-5 (Version None)
Quarter: 2007Q1

REPORT INFORMATION
  Report Type: 
  Country: None (occurrence: None)
  Receive Date: 20061204
  Receipt Date: 20060816
  Transmission Date: 20070707
  Serious: Yes (Hospitalization)
  Sender: FDA-Public Use
  Company Number: 008337

PATIENT
  Age: 49 Year
  Sex: Male
  Weight: 83.9 kg

DRUGS (7)
  1. WARFARIN SODIUM [Suspect]
     Indication: HEART VALVE REPLACEMENT
     Dosage: 5 MG QD ORAL; 2.5 MG, 1/WEEK, ORAL ; 10 MG SINGLE, ORAL
     Route: 048
     Dates: start: 20060725, end: 20060725
  2. WARFARIN SODIUM [Suspect]
     Indication: HEART VALVE REPLACEMENT
     Dosage: 5 MG QD ORAL; 2.5 MG, 1/WEEK, ORAL ; 10 MG SINGLE, ORAL
     Route: 048
     Dates: start: 20050401
  3. WARFARIN SODIUM [Suspect]
     Indication: HEART VALVE REPLACEMENT
     Dosage: 5 MG QD ORAL; 2.5 MG, 1/WEEK, ORAL ; 10 MG SINGLE, ORAL
     Route: 048
     Dates: start: 20060701
  4. LEVOTHYROXINE SODIUM [Concomitant]
  5. DIOVAN [Concomitant]
  6. VYTORIN [Concomitant]
  7. NIASPAN [Concomitant]

REACTIONS (3)
  - CHEST DISCOMFORT [None]
  - DRUG INEFFECTIVE [None]
  - PROTHROMBIN LEVEL ABNORMAL [None]
